FAERS Safety Report 12093729 (Version 9)
Quarter: 2016Q4

REPORT INFORMATION
  Report Type: Spontaneous
  Country: BR (occurrence: BR)
  Receive Date: 20160219
  Receipt Date: 20161007
  Transmission Date: 20170206
  Serious: Yes (Hospitalization, Other)
  Sender: FDA-Public Use
  Company Number: BR-PFIZER INC-2016093943

PATIENT
  Age: 55 Year
  Sex: Male
  Weight: 85 kg

DRUGS (2)
  1. SUTENT [Suspect]
     Active Substance: SUNITINIB MALATE
     Indication: METASTATIC RENAL CELL CARCINOMA
     Dosage: 50 MG, DAILY CYCLIC 4X2
     Route: 048
     Dates: start: 20151127
  2. SUTENT [Suspect]
     Active Substance: SUNITINIB MALATE
     Dosage: 50 MG, 1 CAPSULE DAILY, CYCLE 4X2
     Route: 048
     Dates: start: 20151220

REACTIONS (14)
  - Nodule [Not Recovered/Not Resolved]
  - Swelling [Not Recovered/Not Resolved]
  - Abdominal distension [Recovered/Resolved]
  - Anal haemorrhage [Recovered/Resolved]
  - Testicular pain [Unknown]
  - Rectal haemorrhage [Recovered/Resolved]
  - Acne [Recovering/Resolving]
  - Dermatitis allergic [Recovered/Resolved]
  - Metastatic renal cell carcinoma [Unknown]
  - Epiploic appendagitis [Recovered/Resolved]
  - Disease progression [Unknown]
  - Fistula discharge [Recovered/Resolved]
  - Condition aggravated [Unknown]
  - Back pain [Unknown]

NARRATIVE: CASE EVENT DATE: 2015
